FAERS Safety Report 7628644-4 (Version None)
Quarter: 2011Q3

REPORT INFORMATION
  Report Type: 
  Country: None (occurrence: None)
  Receive Date: 20110721
  Receipt Date: 20110721
  Transmission Date: 20111222
  Serious: Yes (Other)
  Sender: FDA-Public Use
  Company Number: None

PATIENT
  Age: 20 Year
  Sex: Male
  Weight: 106.5953 kg

DRUGS (9)
  1. PHENYTOIN SODIUM [Concomitant]
     Indication: GRAND MAL CONVULSION
     Dosage: 100 MG Q 12H
  2. DILANTIN [Concomitant]
  3. LOVAZA [Concomitant]
  4. TOPAMAX [Suspect]
  5. KEPPRA [Suspect]
  6. BENICAR [Concomitant]
  7. VITAMIN D [Concomitant]
  8. TOPIRAMATE [Suspect]
  9. ZETIA [Concomitant]

REACTIONS (2)
  - PRODUCT SUBSTITUTION ISSUE [None]
  - GRAND MAL CONVULSION [None]
